FAERS Safety Report 8337074-1 (Version None)
Quarter: 2012Q2

REPORT INFORMATION
  Report Type: 
  Country: None (occurrence: None)
  Receive Date: 20120504
  Receipt Date: 20120427
  Transmission Date: 20120825
  Serious: Yes (Hospitalization)
  Sender: FDA-Public Use
  Company Number: DE-PFIZER INC-2012095753

PATIENT
  Age: 76 Year
  Sex: Male

DRUGS (3)
  1. METFORMIN HYDROCHLORIDE [Concomitant]
  2. TORISEL [Suspect]
     Indication: MANTLE CELL LYMPHOMA
     Dosage: 50 MG, WEEKLY
     Dates: start: 20120201
  3. LAMIVUDINE [Concomitant]
     Indication: EXPOSURE TO COMMUNICABLE DISEASE

REACTIONS (2)
  - MYALGIA [None]
  - BLOOD CREATINE PHOSPHOKINASE INCREASED [None]
